FAERS Safety Report 9156668 (Version 1)
Quarter: 2013Q1

REPORT INFORMATION
  Report Type: Spontaneous
  Country: US (occurrence: None)
  Receive Date: 20130307
  Receipt Date: 20130307
  Transmission Date: 20140127
  Serious: Yes (Hospitalization)
  Sender: FDA-Public Use
  Company Number: None

PATIENT
  Age: 44 Year
  Sex: Male

DRUGS (3)
  1. TRIAMCINOLONE [Suspect]
     Indication: ARTHRALGIA
     Route: 050
     Dates: start: 20130207, end: 20130207
  2. TRIAMCINOLONE [Suspect]
     Indication: MUSCULOSKELETAL STIFFNESS
     Route: 050
     Dates: start: 20130207, end: 20130207
  3. LIDOCAINE [Suspect]
     Route: 030
     Dates: start: 20130207, end: 20130207

REACTIONS (6)
  - Dizziness [None]
  - Angioedema [None]
  - Urticaria [None]
  - Pruritus [None]
  - Tachycardia [None]
  - Aggression [None]
